FAERS Safety Report 19469786 (Version 3)
Quarter: 2021Q3

REPORT INFORMATION
  Report Type: Spontaneous
  Country: DE (occurrence: DE)
  Receive Date: 20210628
  Receipt Date: 20210809
  Transmission Date: 20211014
  Serious: Yes (Hospitalization, Other)
  Sender: FDA-Public Use
  Company Number: DE-BRISTOL-MYERS SQUIBB COMPANY-BMS-2021-062092

PATIENT
  Age: 80 Year
  Sex: Female
  Weight: 85 kg

DRUGS (3)
  1. TORASEMIDE [Suspect]
     Active Substance: TORSEMIDE
     Indication: DYSPNOEA EXERTIONAL
     Dosage: UNK UNK, QD
     Route: 065
  2. ELIQUIS [Suspect]
     Active Substance: APIXABAN
     Indication: CEREBROVASCULAR ACCIDENT PROPHYLAXIS
     Dosage: 2.5 MILLIGRAM, BID
     Route: 048
     Dates: start: 202103, end: 20210615
  3. ELIQUIS [Suspect]
     Active Substance: APIXABAN
     Indication: EMBOLISM ARTERIAL

REACTIONS (4)
  - Blood creatinine increased [Unknown]
  - Weight decreased [Unknown]
  - Myelodysplastic syndrome [Unknown]
  - Cutaneous vasculitis [Recovered/Resolved]

NARRATIVE: CASE EVENT DATE: 202103
